FAERS Safety Report 4283244-1 (Version None)
Quarter: 2004Q1

REPORT INFORMATION
  Report Type: 
  Country: None (occurrence: None)
  Receive Date: 20040129
  Receipt Date: 20040122
  Transmission Date: 20041129
  Serious: Yes (Hospitalization)
  Sender: FDA-Public Use
  Company Number: 200410269GDS

PATIENT
  Age: 35 Year
  Sex: Female

DRUGS (2)
  1. MOXIFLOXACIN HCL [Suspect]
     Indication: ACUTE SINUSITIS
     Dosage: 400 MG, TOTAL DAILY, ORAL
     Route: 048
     Dates: start: 20040116
  2. ACETYLSALICYLIC ACID + VITAMIN C [Concomitant]

REACTIONS (3)
  - RASH [None]
  - TOXIC SKIN ERUPTION [None]
  - URTICARIA [None]
